FAERS Safety Report 5923049-6 (Version None)
Quarter: 2008Q4

REPORT INFORMATION
  Report Type: 
  Country: None (occurrence: None)
  Receive Date: 20081018
  Receipt Date: 20081005
  Transmission Date: 20090506
  Serious: Yes (Other)
  Sender: FDA-Public Use
  Company Number: US-PFIZER INC-2008084344

PATIENT
  Sex: Female
  Weight: 73.5 kg

DRUGS (7)
  1. CHANTIX [Suspect]
     Indication: SMOKING CESSATION THERAPY
     Route: 048
     Dates: start: 20080401, end: 20080601
  2. VICODIN ES [Concomitant]
     Route: 048
  3. LASIX [Concomitant]
     Route: 048
  4. VERAPAMIL [Concomitant]
     Route: 048
  5. ZANAFLEX [Concomitant]
     Indication: ARTHRITIS
     Route: 048
  6. DRUG, UNSPECIFIED [Concomitant]
  7. SOMA [Concomitant]
     Indication: ARTHRITIS

REACTIONS (2)
  - GASTRIC BYPASS [None]
  - PAIN [None]
